FAERS Safety Report 7533151-3 (Version None)
Quarter: 2011Q2

REPORT INFORMATION
  Report Type: 
  Country: None (occurrence: None)
  Receive Date: 20110608
  Receipt Date: 20021004
  Transmission Date: 20111010
  Serious: Yes (Other)
  Sender: FDA-Public Use
  Company Number: PHBS2002CA12101

PATIENT
  Sex: Female

DRUGS (5)
  1. ESTROGENS CONJUGATED [Concomitant]
  2. SEROQUEL [Concomitant]
     Dosage: 100 MG, BID
     Route: 065
  3. MEDTROPROGESTERONE [Concomitant]
  4. LEVOTHYROXINE SODIUM [Concomitant]
  5. CLOZAPINE [Suspect]
     Indication: SCHIZOPHRENIA
     Dosage: 200 MG, UNK
     Route: 048
     Dates: start: 19981105

REACTIONS (1)
  - CEREBROVASCULAR ACCIDENT [None]
